FAERS Safety Report 25137124 (Version 1)
Quarter: 2025Q1

REPORT INFORMATION
  Report Type: Report from Study
  Country: UY (occurrence: UY)
  Receive Date: 20250328
  Receipt Date: 20250328
  Transmission Date: 20250408
  Serious: Yes (Other)
  Sender: ABBVIE
  Company Number: UY-ABBVIE-6187122

PATIENT
  Age: 16 Year
  Sex: Female

DRUGS (3)
  1. RINVOQ [Suspect]
     Active Substance: UPADACITINIB
     Indication: Product used for unknown indication
     Route: 048
     Dates: start: 20241211, end: 202502
  2. RINVOQ [Suspect]
     Active Substance: UPADACITINIB
     Indication: Product used for unknown indication
     Route: 048
     Dates: start: 202502
  3. CEPHRADINE [Concomitant]
     Active Substance: CEPHRADINE
     Indication: Product used for unknown indication

REACTIONS (6)
  - Retinal artery occlusion [Unknown]
  - Acne [Recovering/Resolving]
  - Faecal calprotectin decreased [Unknown]
  - Haemorrhage [Unknown]
  - Rash [Unknown]
  - Fear [Unknown]

NARRATIVE: CASE EVENT DATE: 20250101
